FAERS Safety Report 4318158-1 (Version None)
Quarter: 2004Q1

REPORT INFORMATION
  Report Type: 
  Country: None (occurrence: None)
  Receive Date: 20040317
  Receipt Date: 20040310
  Transmission Date: 20041129
  Serious: Yes (Death)
  Sender: FDA-Public Use
  Company Number: IT-ROCHE-361136

PATIENT
  Age: 72 Year

DRUGS (2)
  1. CAPECITABINE [Suspect]
     Dosage: TWO WEEKS TREATMENT AND ONE WEEK REST.ONE CYCLE RECEIVED.
     Route: 048
  2. IRINOTECAN [Suspect]
     Dosage: ON DAYS 1 AND 8. ONE CYCLE RECEIVED.
     Route: 042

REACTIONS (1)
  - DIARRHOEA [None]
